FAERS Safety Report 8887387 (Version 1)
Quarter: 2012Q4

REPORT INFORMATION
  Report Type: 
  Country: JP (occurrence: JP)
  Receive Date: 20121105
  Receipt Date: 20121105
  Transmission Date: 20130627
  Serious: Yes (Hospitalization, Other)
  Sender: FDA-Public Use
  Company Number: JP-BRISTOL-MYERS SQUIBB COMPANY-17081944

PATIENT
  Age: 30 Year
  Sex: Female

DRUGS (7)
  1. ORENCIA FOR INJ 250 MG/VIAL [Suspect]
     Indication: RHEUMATOID ARTHRITIS
     Route: 041
     Dates: start: 20110329, end: 20120924
  2. RHEUMATREX [Suspect]
     Route: 048
     Dates: start: 20101228, end: 20121010
  3. PREDONINE [Suspect]
     Route: 048
     Dates: start: 20110111, end: 20121010
  4. LOXONIN [Concomitant]
     Indication: RHEUMATOID ARTHRITIS
  5. ISCOTIN [Concomitant]
     Indication: ANTIBIOTIC PROPHYLAXIS
  6. TAKEPRON [Concomitant]
     Indication: GASTRITIS PROPHYLAXIS
  7. MUCOSTA [Concomitant]
     Indication: GASTRITIS PROPHYLAXIS

REACTIONS (2)
  - Pyelonephritis [Recovering/Resolving]
  - Calculus urinary [Unknown]
